FAERS Safety Report 16065369 (Version 1)
Quarter: 2019Q1

REPORT INFORMATION
  Report Type: Spontaneous
  Country: US (occurrence: US)
  Receive Date: 20190313
  Receipt Date: 20190313
  Transmission Date: 20190418
  Serious: No
  Sender: FDA-Public Use
  Company Number: US-ADAAP-201800240

PATIENT
  Age: 59 Year
  Sex: Male
  Weight: 115.6 kg

DRUGS (1)
  1. NETSPOT [Suspect]
     Active Substance: DOTATATE GALLIUM GA-68
     Indication: POSITRON EMISSION TOMOGRAM
     Route: 042
     Dates: start: 20181221, end: 20181221

REACTIONS (1)
  - Scan gallium abnormal [Recovered/Resolved]
